FAERS Safety Report 8512940-2 (Version None)
Quarter: 2012Q3

REPORT INFORMATION
  Report Type: 
  Country: None (occurrence: None)
  Receive Date: 20120716
  Receipt Date: 20120703
  Transmission Date: 20120928
  Serious: Yes (Hospitalization, Other)
  Sender: FDA-Public Use
  Company Number: US-ELI_LILLY_AND_COMPANY-US201207001642

PATIENT
  Sex: Female

DRUGS (3)
  1. HUMULIN R [Suspect]
     Indication: TYPE 1 DIABETES MELLITUS
     Dosage: UNK
     Route: 058
     Dates: start: 20110501
  2. NOVOLOG [Concomitant]
     Route: 058
  3. HUMALOG [Suspect]
     Indication: TYPE 1 DIABETES MELLITUS
     Dosage: UNK
     Route: 058
     Dates: end: 20110501

REACTIONS (3)
  - DRUG INEFFECTIVE [None]
  - DIABETIC KETOACIDOSIS [None]
  - DEHYDRATION [None]
